FAERS Safety Report 4963306-3 (Version None)
Quarter: 2006Q2

REPORT INFORMATION
  Report Type: 
  Country: None (occurrence: None)
  Receive Date: 20060404
  Receipt Date: 20060404
  Transmission Date: 20061013
  Serious: Yes (Other)
  Sender: FDA-Public Use
  Company Number: None

PATIENT
  Sex: Male

DRUGS (2)
  1. CHLORAPREP [Suspect]
     Indication: INTRAOPERATIVE CARE
     Dosage: TOPICAL TO RIGHT HAND AND ARM
     Route: 061
  2. DARVOCET [Concomitant]

REACTIONS (3)
  - BLISTER [None]
  - POST PROCEDURAL COMPLICATION [None]
  - RASH [None]
